FAERS Safety Report 11394997 (Version 1)
Quarter: 2015Q3

REPORT INFORMATION
  Report Type: Spontaneous
  Country: US (occurrence: None)
  Receive Date: 20150817
  Receipt Date: 20150817
  Transmission Date: 20151125
  Serious: Yes (Other)
  Sender: FDA-Public Use
  Company Number: None

PATIENT
  Age: 64 Year
  Sex: Female

DRUGS (7)
  1. TUMERIC [Concomitant]
  2. VITAMIN D [Concomitant]
     Active Substance: CHOLECALCIFEROL
  3. AMLODIPINE BESYLATE. [Concomitant]
     Active Substance: AMLODIPINE BESYLATE
  4. DANDELION ROOT [Concomitant]
  5. BIOTIN [Concomitant]
     Active Substance: BIOTIN
  6. PROBIOTIC [Concomitant]
     Active Substance: PROBIOTICS NOS
  7. HARVONI [Suspect]
     Active Substance: LEDIPASVIR\SOFOSBUVIR
     Indication: HEPATITIS C
     Dosage: 28  QD  ORAL
     Route: 048
     Dates: start: 20150721

REACTIONS (2)
  - Peripheral swelling [None]
  - Condition aggravated [None]
